FAERS Safety Report 17219492 (Version 1)
Quarter: 2019Q4

REPORT INFORMATION
  Report Type: Spontaneous
  Country: US (occurrence: US)
  Receive Date: 20191209
  Receipt Date: 20191209
  Transmission Date: 20200122
  Serious: Yes (Hospitalization)
  Sender: FDA-Public Use
  Company Number: None

PATIENT
  Age: 42 Year
  Sex: Male

DRUGS (13)
  1. HUMIRA [Suspect]
     Active Substance: ADALIMUMAB
     Dosage: ?          OTHER FREQUENCY:1 X EVERY OTHER WK;?
     Route: 058
     Dates: start: 20190125
  2. VITAMIN C 500MG TAB [Concomitant]
  3. METOPROLSUC TAB 25MG ER 12/9/19 [Concomitant]
  4. WARFARIN 5 MG TAB [Concomitant]
  5. CALCIUM/D CHW 500-400 1/24/19 [Concomitant]
  6. DILTIAZEM CAP 120MG ER [Concomitant]
  7. SPIRONOLACT 25 MG TAB [Concomitant]
  8. URSODIOL 500 MG TAB [Concomitant]
  9. IRON TAB 65 MG [Concomitant]
  10. ACIDOPHILUS CAP [Concomitant]
  11. LASIX 20MG TAB [Concomitant]
  12. NEXIUM 24HR 20MG CAP [Concomitant]
  13. KLOR-CON M20 TAB 20 EQ ER [Concomitant]

REACTIONS (2)
  - Pneumonia [None]
  - Product dose omission [None]

NARRATIVE: CASE EVENT DATE: 20191209
